FAERS Safety Report 20508327 (Version 2)
Quarter: 2022Q1

REPORT INFORMATION
  Report Type: Spontaneous
  Country: US (occurrence: US)
  Receive Date: 20220223
  Receipt Date: 20220315
  Transmission Date: 20220423
  Serious: No
  Sender: FDA-Public Use
  Company Number: US-PFIZER INC-202200282356

PATIENT
  Age: 65 Year
  Sex: Female
  Weight: 56.689 kg

DRUGS (2)
  1. PREGABALIN [Suspect]
     Active Substance: PREGABALIN
     Indication: Fibromyalgia
     Dosage: UNK
  2. PREGABALIN [Suspect]
     Active Substance: PREGABALIN
     Dosage: UNK(100 2 A DAY)

REACTIONS (3)
  - Drug ineffective [Not Recovered/Not Resolved]
  - Confusional state [Unknown]
  - Pain [Unknown]
